FAERS Safety Report 21108754 (Version 3)
Quarter: 2022Q3

REPORT INFORMATION
  Report Type: Spontaneous
  Country: CZ (occurrence: CZ)
  Receive Date: 20220721
  Receipt Date: 20220929
  Transmission Date: 20221027
  Serious: Yes (Hospitalization, Other)
  Sender: FDA-Public Use
  Company Number: CZ-SUN PHARMACEUTICAL INDUSTRIES LTD-2022RR-342978

PATIENT
  Age: 68 Year
  Sex: Male

DRUGS (10)
  1. PAROXETINE [Interacting]
     Active Substance: PAROXETINE
     Indication: Depression
     Dosage: 40 MILLIGRAM, ONCE A DAY (TOTAL DAILY DOSE 40 MG (20 MG TABLET AT DOSAGE SCHEME 1-0-1)
     Route: 048
  2. PAROXETINE [Interacting]
     Active Substance: PAROXETINE
     Indication: Major depression
  3. RISPERIDONE [Interacting]
     Active Substance: RISPERIDONE
     Indication: Depression
     Dosage: 2 MILLIGRAM, ONCE A DAY (TOTAL DAILY DOSE 2 MG (1 MG TABLET AT DOSAGE SCHEME 1-0-1)
     Route: 048
  4. RISPERIDONE [Interacting]
     Active Substance: RISPERIDONE
     Indication: Major depression
  5. ASPIRIN [Interacting]
     Active Substance: ASPIRIN
     Indication: Major depression
     Dosage: 100 MILLIGRAM, ONCE A DAY (TOTAL DAILY DOSE 100 MG (DOSAGE SCHEME 0-1-0)
     Route: 048
  6. ASPIRIN [Interacting]
     Active Substance: ASPIRIN
     Indication: Depression
  7. PERINDOPRIL [Interacting]
     Active Substance: PERINDOPRIL
     Indication: Major depression
     Dosage: 8 MILLIGRAM, ONCE A DAY (TOTAL DAILY DOSE 8 MG (4 MG TABLET AT DOSAGE SCHEME 1-0-1)
     Route: 048
  8. PERINDOPRIL [Interacting]
     Active Substance: PERINDOPRIL
     Indication: Depression
  9. PREGABALIN [Interacting]
     Active Substance: PREGABALIN
     Indication: Major depression
     Dosage: 450 MILLIGRAM, ONCE A DAY (TOTAL DAILY DOSE 450 MG (150 MG TABLET AT DOSAGE SCHEME 1-1-1)
     Route: 048
  10. PREGABALIN [Interacting]
     Active Substance: PREGABALIN
     Indication: Depression

REACTIONS (9)
  - Extrapyramidal disorder [Unknown]
  - Constipation [Unknown]
  - Tremor [Recovering/Resolving]
  - Mobility decreased [Unknown]
  - Dysarthria [Recovering/Resolving]
  - Drug level increased [Unknown]
  - Drug interaction [Unknown]
  - Product use in unapproved indication [Unknown]
  - Therapeutic product effect incomplete [Recovered/Resolved]
